FAERS Safety Report 9655481 (Version 2)
Quarter: 2013Q4

REPORT INFORMATION
  Report Type: Spontaneous
  Country: US (occurrence: US)
  Receive Date: 20131029
  Receipt Date: 20131029
  Transmission Date: 20140711
  Serious: No
  Sender: FDA-Public Use
  Company Number: US-PURDUE-USA-2010-0048746

PATIENT
  Age: 53 Year
  Sex: Male
  Weight: 81.63 kg

DRUGS (2)
  1. OXYCONTIN (NDA 22-272) [Suspect]
     Indication: BACK PAIN
     Dosage: 40 MG, DAILY
     Dates: start: 20100908, end: 20100916
  2. OXYCONTIN (NDA 22-272) [Suspect]
     Dosage: 80 MG, DAILY

REACTIONS (11)
  - Haematochezia [Unknown]
  - Inadequate analgesia [Unknown]
  - Flatulence [Unknown]
  - Abdominal pain lower [Unknown]
  - Bowel movement irregularity [Recovered/Resolved]
  - Product quality issue [Unknown]
  - Intentional drug misuse [Unknown]
  - Abnormal faeces [Unknown]
  - Anal pruritus [Unknown]
  - Rectal discharge [Unknown]
  - Wrong technique in drug usage process [Unknown]
